FAERS Safety Report 7365067-X (Version None)
Quarter: 2011Q1

REPORT INFORMATION
  Report Type: 
  Country: None (occurrence: None)
  Receive Date: 20110321
  Receipt Date: 20110316
  Transmission Date: 20110831
  Serious: Yes (Other)
  Sender: FDA-Public Use
  Company Number: IE-AMGEN-IRLSP2011014673

PATIENT
  Sex: Female

DRUGS (3)
  1. DEXAMETHASONE [Concomitant]
  2. VALOID                             /00014901/ [Concomitant]
  3. NEULASTA [Suspect]
     Indication: PRODUCT USED FOR UNKNOWN INDICATION
     Dosage: 6 MG, Q3WK
     Route: 058
     Dates: start: 20110202

REACTIONS (1)
  - PAIN [None]
